FAERS Safety Report 19290163 (Version 1)
Quarter: 2021Q2

REPORT INFORMATION
  Report Type: Spontaneous
  Country: US (occurrence: US)
  Receive Date: 20210521
  Receipt Date: 20210521
  Transmission Date: 20210717
  Serious: No
  Sender: FDA-Public Use
  Company Number: US-RADIUS HEALTH INC.-2021US000138

PATIENT
  Sex: Female

DRUGS (2)
  1. MICRO K [Concomitant]
     Indication: PRODUCT USED FOR UNKNOWN INDICATION
  2. TYMLOS [Suspect]
     Active Substance: ABALOPARATIDE
     Indication: SENILE OSTEOPOROSIS
     Dosage: 80 MCG, QD
     Route: 058
     Dates: start: 20201117

REACTIONS (3)
  - Needle issue [Unknown]
  - Heart rate increased [Not Recovered/Not Resolved]
  - Product dose omission in error [Not Recovered/Not Resolved]
